FAERS Safety Report 4633424-8 (Version None)
Quarter: 2005Q2

REPORT INFORMATION
  Report Type: 
  Country: None (occurrence: None)
  Receive Date: 20050412
  Receipt Date: 20050408
  Transmission Date: 20051028
  Serious: Yes (Hospitalization, Other)
  Sender: FDA-Public Use
  Company Number: US-MERCK-0504USA01240

PATIENT
  Sex: Male

DRUGS (1)
  1. VIOXX [Suspect]
     Indication: GOUT
     Route: 048
     Dates: start: 19990101, end: 20020101

REACTIONS (4)
  - GENERAL SYMPTOM [None]
  - MALAISE [None]
  - MYOCARDIAL INFARCTION [None]
  - RENAL DISORDER [None]
